FAERS Safety Report 9812609 (Version 1)
Quarter: 2014Q1

REPORT INFORMATION
  Report Type: Spontaneous
  Country: KR (occurrence: KR)
  Receive Date: 20140113
  Receipt Date: 20140113
  Transmission Date: 20141002
  Serious: Yes (Other)
  Sender: FDA-Public Use
  Company Number: KR-MERCK-1401KOR003885

PATIENT
  Sex: 0

DRUGS (1)
  1. CANCIDAS [Suspect]
     Dosage: UNK

REACTIONS (1)
  - Platelet transfusion [Unknown]
